FAERS Safety Report 16218450 (Version 1)
Quarter: 2019Q2

REPORT INFORMATION
  Report Type: Spontaneous
  Country: US (occurrence: US)
  Receive Date: 20190419
  Receipt Date: 20190419
  Transmission Date: 20190711
  Serious: Yes (Other)
  Sender: FDA-Public Use
  Company Number: US-AMGEN INC.-USASP2019061996

PATIENT
  Age: 30 Year
  Sex: Female

DRUGS (1)
  1. AIMOVIG [Suspect]
     Active Substance: ERENUMAB-AOOE
     Indication: MIGRAINE
     Dosage: 70 MILLIGRAM , (EVERY 28 DAYS)
     Route: 065
     Dates: start: 201811, end: 20190327

REACTIONS (3)
  - Ocular discomfort [Recovered/Resolved]
  - Uveitis [Not Recovered/Not Resolved]
  - Blindness transient [Recovered/Resolved]

NARRATIVE: CASE EVENT DATE: 2018
